FAERS Safety Report 4611644-6 (Version None)
Quarter: 2005Q2

REPORT INFORMATION
  Report Type: 
  Country: None (occurrence: None)
  Receive Date: 20050311
  Receipt Date: 20050112
  Transmission Date: 20051028
  Serious: No
  Sender: FDA-Public Use
  Company Number: 2005-BP-00556BP

PATIENT
  Age: 72 Year
  Sex: Male

DRUGS (8)
  1. SPIRIVA [Suspect]
     Indication: CHRONIC OBSTRUCTIVE PULMONARY DISEASE
     Dosage: 18 MCG (18 MCG, QD), IH
     Route: 055
     Dates: start: 20041001
  2. SPIRIVA [Suspect]
  3. COUMADIN [Concomitant]
  4. ADVAIR DISKUS 100/50 [Concomitant]
  5. ALBUTEROL [Concomitant]
  6. SINGULAIR (MONTELUKAST) [Concomitant]
  7. LIPITOR [Concomitant]
  8. NEXIUM [Concomitant]

REACTIONS (1)
  - DYSPNOEA EXERTIONAL [None]
